FAERS Safety Report 5354014-8 (Version None)
Quarter: 2007Q2

REPORT INFORMATION
  Report Type: 
  Country: None (occurrence: None)
  Receive Date: 20070608
  Receipt Date: 20070608
  Transmission Date: 20071010
  Serious: Yes (Hospitalization)
  Sender: FDA-Public Use
  Company Number: None

PATIENT
  Sex: Male
  Weight: 104.5 kg

DRUGS (3)
  1. 5-FLUOROURACIL (5-FU) [Suspect]
     Dosage: 925 MG
  2. LEUCOVORIN CALCIUM [Suspect]
     Dosage: 43 MG
  3. RADIATION [Suspect]

REACTIONS (1)
  - ADVERSE EVENT [None]
